FAERS Safety Report 4843151-X (Version None)
Quarter: 2005Q4

REPORT INFORMATION
  Report Type: 
  Country: None (occurrence: None)
  Receive Date: 20051201
  Receipt Date: 20051121
  Transmission Date: 20060501
  Serious: Yes (Death)
  Sender: FDA-Public Use
  Company Number: IN-ABBOTT-05P-078-0318151-00

PATIENT
  Age: 35 Year
  Sex: Female

DRUGS (6)
  1. CYCLOSPORINE [Suspect]
     Indication: IMMUNOSUPPRESSION
  2. CYCLOSPORINE [Suspect]
     Dosage: 3-4 MG/KG/DAY
  3. AZATHIOPRINE [Suspect]
     Indication: IMMUNOSUPPRESSION
  4. PREDNISOLONE [Suspect]
     Indication: IMMUNOSUPPRESSION
  5. PREDNISOLONE [Suspect]
     Dosage: MAINTENANCE DOSE
  6. ACYCLOVIR [Concomitant]
     Indication: DRUG USE FOR UNKNOWN INDICATION

REACTIONS (3)
  - DIFFUSE LARGE B-CELL LYMPHOMA [None]
  - KLEBSIELLA SEPSIS [None]
  - LYMPHOPROLIFERATIVE DISORDER [None]
